FAERS Safety Report 12010648 (Version 1)
Quarter: 2016Q1

REPORT INFORMATION
  Report Type: Spontaneous
  Country: US (occurrence: US)
  Receive Date: 20160205
  Receipt Date: 20160205
  Transmission Date: 20160526
  Serious: No
  Sender: FDA-Public Use
  Company Number: US-SHIRE-US201601030

PATIENT
  Age: 65 Year
  Sex: Male
  Weight: 79.37 kg

DRUGS (3)
  1. PENTASA [Suspect]
     Active Substance: MESALAMINE
     Dosage: UNK (500 MG CAPSULES, 2 OR 3), UNKNOWN
     Route: 048
     Dates: start: 20160123, end: 20160123
  2. PENTASA [Suspect]
     Active Substance: MESALAMINE
     Indication: CROHN^S DISEASE
     Dosage: UNK (500 MG CAPSULES, 2 OR 4) UNKNOWN (A DAY)
     Route: 048
     Dates: start: 20160121, end: 20160121
  3. PENTASA [Suspect]
     Active Substance: MESALAMINE
     Dosage: UNK (500 MG CAPSULE, UNKNOWN NUMBER OF CAPSULES), UNKNOWN
     Route: 048
     Dates: start: 20160124, end: 20160125

REACTIONS (2)
  - Abdominal pain [Recovered/Resolved]
  - Product use issue [Recovered/Resolved]

NARRATIVE: CASE EVENT DATE: 20160121
